FAERS Safety Report 17130141 (Version 2)
Quarter: 2020Q1

REPORT INFORMATION
  Report Type: Spontaneous
  Country: FR (occurrence: FR)
  Receive Date: 20191209
  Receipt Date: 20200108
  Transmission Date: 20200409
  Serious: Yes (Death, Hospitalization, Other)
  Sender: FDA-Public Use
  Company Number: FR-009507513-1912FRA002585

PATIENT
  Age: 63 Year
  Sex: Female

DRUGS (1)
  1. GRAZOPREVIR (+) ELBASVIR [Suspect]
     Active Substance: ELBASVIR\GRAZOPREVIR
     Indication: HEPATITIS C
     Dosage: 1 DOSAGE FORM EVERY 1 DAY
     Route: 048
     Dates: start: 20170810, end: 20171008

REACTIONS (1)
  - Death [Fatal]

NARRATIVE: CASE EVENT DATE: 20171008
